FAERS Safety Report 8370569-3 (Version None)
Quarter: 2012Q2

REPORT INFORMATION
  Report Type: 
  Country: None (occurrence: None)
  Receive Date: 20120518
  Receipt Date: 20120515
  Transmission Date: 20120825
  Serious: Yes (Death, Life-Threatening, Hospitalization)
  Sender: FDA-Public Use
  Company Number: US-JNJFOC-20120514514

PATIENT
  Sex: Male

DRUGS (16)
  1. POTASSIUM CHLORIDE [Concomitant]
  2. PRILOSEC [Concomitant]
  3. AMBRISENTAN [Suspect]
     Indication: PULMONARY HYPERTENSION
     Dosage: REGIMIN #2
     Dates: start: 20120323, end: 20120404
  4. FORADIL [Concomitant]
  5. ZOCOR [Concomitant]
  6. ASPIRIN [Concomitant]
  7. SPIRIVA [Concomitant]
     Route: 055
  8. AMIODARONE HCL [Concomitant]
  9. COREG [Concomitant]
  10. XARELTO [Suspect]
     Indication: ANTIPLATELET THERAPY
     Route: 048
  11. MULTIVITAMIN [Concomitant]
  12. NORVASC [Concomitant]
  13. SYNTHROID [Concomitant]
  14. CARDIZEM [Concomitant]
  15. LASIX [Concomitant]
  16. ALBUTEROL [Concomitant]

REACTIONS (4)
  - HAEMOPTYSIS [None]
  - CARDIAC FAILURE CONGESTIVE [None]
  - INTERSTITIAL LUNG DISEASE [None]
  - DYSPNOEA [None]
